FAERS Safety Report 21983676 (Version 1)
Quarter: 2023Q1

REPORT INFORMATION
  Report Type: Spontaneous
  Country: CN (occurrence: CN)
  Receive Date: 20230213
  Receipt Date: 20230213
  Transmission Date: 20230418
  Serious: Yes (Other)
  Sender: FDA-Public Use
  Company Number: CN-SA-SAC20230210001359

PATIENT
  Age: 50 Year
  Sex: Male
  Weight: 50 kg

DRUGS (2)
  1. ELOXATIN [Suspect]
     Active Substance: OXALIPLATIN
     Indication: Gastric cancer
     Dosage: 129 MG, QD
     Route: 042
     Dates: start: 20230129, end: 20230129
  2. DEXTROSE [Concomitant]
     Active Substance: DEXTROSE
     Indication: Gastric cancer
     Dosage: 250 ML, 1X
     Route: 042
     Dates: start: 20230129

REACTIONS (3)
  - Cold sweat [Recovered/Resolved]
  - Chest discomfort [Recovered/Resolved]
  - Dyspnoea [Recovered/Resolved]

NARRATIVE: CASE EVENT DATE: 20230129
